FAERS Safety Report 8124927-2 (Version None)
Quarter: 2012Q1

REPORT INFORMATION
  Report Type: 
  Country: None (occurrence: None)
  Receive Date: 20120209
  Receipt Date: 20120207
  Transmission Date: 20120608
  Serious: Yes (Death)
  Sender: FDA-Public Use
  Company Number: GB-ROCHE-1037554

PATIENT
  Sex: Female

DRUGS (3)
  1. HYDROXYCHLOROQUINE SULFATE [Concomitant]
  2. METHOTREXATE [Concomitant]
  3. MABTHERA [Suspect]
     Indication: PRODUCT USED FOR UNKNOWN INDICATION
     Dates: start: 20080626

REACTIONS (1)
  - DUODENAL ULCER PERFORATION [None]
